FAERS Safety Report 7738593-9 (Version None)
Quarter: 2011Q3

REPORT INFORMATION
  Report Type: 
  Country: None (occurrence: None)
  Receive Date: 20110908
  Receipt Date: 20110829
  Transmission Date: 20111222
  Serious: Yes (Other)
  Sender: FDA-Public Use
  Company Number: US-US-EMD SERONO, INC.-7080254

PATIENT
  Sex: Female
  Weight: 68 kg

DRUGS (3)
  1. GABAPENTIN [Concomitant]
     Indication: MULTIPLE SCLEROSIS
  2. REBIF [Suspect]
     Indication: MULTIPLE SCLEROSIS
     Route: 058
     Dates: start: 20110825
  3. IBUPROFEN [Concomitant]
     Indication: PREMEDICATION

REACTIONS (6)
  - DIZZINESS [None]
  - INJECTION SITE HAEMATOMA [None]
  - PRESYNCOPE [None]
  - FEELING HOT [None]
  - INFLUENZA LIKE ILLNESS [None]
  - BLOOD PRESSURE DECREASED [None]
